FAERS Safety Report 11335113 (Version 1)
Quarter: 2015Q3

REPORT INFORMATION
  Report Type: Spontaneous
  Country: US (occurrence: None)
  Receive Date: 20150731
  Receipt Date: 20150731
  Transmission Date: 20151125
  Serious: No
  Sender: FDA-Public Use
  Company Number: None

PATIENT
  Age: 51 Year
  Sex: Male

DRUGS (11)
  1. LEVOTHYROXINE. [Concomitant]
     Active Substance: LEVOTHYROXINE
  2. LOSARTAN. [Concomitant]
     Active Substance: LOSARTAN
  3. INSULIN ASPART [Concomitant]
     Active Substance: INSULIN ASPART
  4. PROPRANOLOL [Concomitant]
     Active Substance: PROPRANOLOL\PROPRANOLOL HYDROCHLORIDE
  5. WARFARIN [Suspect]
     Active Substance: WARFARIN
     Indication: ATRIAL FIBRILLATION
     Route: 048
     Dates: start: 20141229
  6. TESTOSTERONE. [Concomitant]
     Active Substance: TESTOSTERONE
  7. TAMSULOSIN [Concomitant]
     Active Substance: TAMSULOSIN
  8. LANSOPRAZOLE. [Concomitant]
     Active Substance: LANSOPRAZOLE
  9. FUROSEMIDE. [Concomitant]
     Active Substance: FUROSEMIDE
  10. DOCUSATE [Concomitant]
     Active Substance: DOCUSATE
  11. ATORVASTATIN [Concomitant]
     Active Substance: ATORVASTATIN

REACTIONS (5)
  - Hypotension [None]
  - Abdominal pain upper [None]
  - Haematemesis [None]
  - International normalised ratio increased [None]
  - Bradycardia [None]

NARRATIVE: CASE EVENT DATE: 20141229
